FAERS Safety Report 20848239 (Version 5)
Quarter: 2022Q3

REPORT INFORMATION
  Report Type: Report from Study
  Country: US (occurrence: US)
  Receive Date: 20220519
  Receipt Date: 20220817
  Transmission Date: 20221027
  Serious: Yes (Hospitalization, Other)
  Sender: FDA-Public Use
  Company Number: US-KOREA IPSEN Pharma-2022-14146

PATIENT
  Age: 54 Year
  Sex: Male

DRUGS (1)
  1. SOMATULINE DEPOT [Suspect]
     Active Substance: LANREOTIDE ACETATE
     Indication: Carcinoid syndrome
     Dosage: 120 MG/0.5ML
     Route: 058
     Dates: start: 2020

REACTIONS (6)
  - Small intestinal obstruction [Recovered/Resolved]
  - Hepatic cancer [Recovering/Resolving]
  - Constipation [Recovering/Resolving]
  - Hot flush [Recovering/Resolving]
  - Weight decreased [Recovering/Resolving]
  - Small intestinal obstruction [Recovering/Resolving]

NARRATIVE: CASE EVENT DATE: 20220101
